FAERS Safety Report 4570060-6 (Version None)
Quarter: 2005Q1

REPORT INFORMATION
  Report Type: 
  Country: None (occurrence: None)
  Receive Date: 20050131
  Receipt Date: 20050119
  Transmission Date: 20050727
  Serious: Yes (Other)
  Sender: FDA-Public Use
  Company Number: HQWYE781621JAN05

PATIENT
  Age: 63 Year
  Sex: Male

DRUGS (2)
  1. MYLOTARG [Suspect]
     Indication: ACUTE MYELOID LEUKAEMIA
     Dosage: 14.9 MG 1 X PER 1 DAY, INTRAVENOUS
     Route: 042
     Dates: start: 20050119, end: 20050119
  2. MYLOTARG [Suspect]
     Indication: LEUKAEMIA RECURRENT
     Dosage: 14.9 MG 1 X PER 1 DAY, INTRAVENOUS
     Route: 042
     Dates: start: 20050119, end: 20050119

REACTIONS (5)
  - CHILLS [None]
  - GENERAL PHYSICAL HEALTH DETERIORATION [None]
  - MEDICATION ERROR [None]
  - NAUSEA [None]
  - RENAL IMPAIRMENT [None]
